FAERS Safety Report 10368036 (Version 1)
Quarter: 2014Q3

REPORT INFORMATION
  Report Type: Spontaneous
  Country: US (occurrence: None)
  Receive Date: 20140806
  Receipt Date: 20140806
  Transmission Date: 20150326
  Serious: Yes (Other)
  Sender: FDA-Public Use
  Company Number: None

PATIENT
  Age: 42 Year
  Sex: Female
  Weight: 71.67 kg

DRUGS (1)
  1. LYRICA [Suspect]
     Active Substance: PREGABALIN
     Indication: NEURALGIA
     Dosage: 3 PILLS THREE TIMES DAILY TAKEN BY MOUTH
     Route: 048
     Dates: start: 20120206, end: 20140728

REACTIONS (7)
  - Quality of life decreased [None]
  - Feeling abnormal [None]
  - Drug withdrawal syndrome [None]
  - Insomnia [None]
  - Crying [None]
  - Decreased appetite [None]
  - Irritability [None]

NARRATIVE: CASE EVENT DATE: 20140728
